FAERS Safety Report 10229472 (Version 1)
Quarter: 2014Q2

REPORT INFORMATION
  Report Type: Report from Study
  Country: US (occurrence: US)
  Receive Date: 20140611
  Receipt Date: 20140611
  Transmission Date: 20141212
  Serious: No
  Sender: FDA-Public Use
  Company Number: US-ALEXION-A201401523

PATIENT
  Sex: 0

DRUGS (2)
  1. SOLIRIS [Suspect]
     Indication: HAEMOLYTIC URAEMIC SYNDROME
     Dosage: 300 MG, Q2W
     Route: 042
     Dates: start: 20130315
  2. AMLODIPINE [Concomitant]
     Indication: HYPERTENSION
     Dosage: 1 MG, UNK
     Route: 065
     Dates: start: 20130306

REACTIONS (2)
  - Laboratory test abnormal [Unknown]
  - Inappropriate schedule of drug administration [Unknown]
